FAERS Safety Report 17466712 (Version 1)
Quarter: 2020Q1

REPORT INFORMATION
  Report Type: Report from Study
  Country: GB (occurrence: GB)
  Receive Date: 20200227
  Receipt Date: 20200227
  Transmission Date: 20200409
  Serious: Yes (Hospitalization)
  Sender: FDA-Public Use
  Company Number: GB-SAMSUNG BIOEPIS-SB-2020-06421

PATIENT
  Sex: Female

DRUGS (1)
  1. IMRALDI [Suspect]
     Active Substance: ADALIMUMAB
     Indication: PSORIATIC ARTHROPATHY
     Route: 058
     Dates: end: 202002

REACTIONS (12)
  - Kidney infection [Not Recovered/Not Resolved]
  - Palpitations [Unknown]
  - Paraesthesia [Unknown]
  - Heart rate decreased [Unknown]
  - Rhinitis [Not Recovered/Not Resolved]
  - Psoriasis [Unknown]
  - White blood cell count decreased [Unknown]
  - Hypertension [Unknown]
  - Eye infection [Not Recovered/Not Resolved]
  - Urinary tract infection [Not Recovered/Not Resolved]
  - Gingivitis [Not Recovered/Not Resolved]
  - Muscular weakness [Unknown]
